FAERS Safety Report 8894674 (Version 2)
Quarter: 2012Q4

REPORT INFORMATION
  Report Type: 
  Country: US (occurrence: US)
  Receive Date: 20121108
  Receipt Date: 20121219
  Transmission Date: 20130627
  Serious: Yes (Other)
  Sender: FDA-Public Use
  Company Number: US-AMGEN-USASP2012070162

PATIENT
  Age: 46 Year
  Sex: Female

DRUGS (1)
  1. ENBREL [Suspect]
     Indication: RHEUMATOID ARTHRITIS
     Dosage: 50 mg, qwk
     Dates: start: 20111114

REACTIONS (13)
  - Heart rate decreased [Recovered/Resolved]
  - Heart rate irregular [Not Recovered/Not Resolved]
  - Sinus arrest [Not Recovered/Not Resolved]
  - Dehydration [Not Recovered/Not Resolved]
  - Pain in extremity [Recovered/Resolved]
  - Chest pain [Recovered/Resolved]
  - Dry skin [Not Recovered/Not Resolved]
  - Haemorrhoids [Recovered/Resolved]
  - Back pain [Not Recovered/Not Resolved]
  - Dysuria [Not Recovered/Not Resolved]
  - Stress [Recovered/Resolved]
  - Abdominal pain [Not Recovered/Not Resolved]
  - Tinea versicolour [Not Recovered/Not Resolved]
